FAERS Safety Report 4578459-9 (Version None)
Quarter: 2005Q1

REPORT INFORMATION
  Report Type: 
  Country: None (occurrence: None)
  Receive Date: 20050202
  Receipt Date: 20050202
  Transmission Date: 20050727
  Serious: Yes (Hospitalization)
  Sender: FDA-Public Use
  Company Number: None

PATIENT
  Sex: Female
  Weight: 56.246 kg

DRUGS (1)
  1. HERCEPTIN [Suspect]
     Indication: BREAST CANCER
     Dosage: 2 MG/KG IV
     Route: 042
     Dates: start: 20050118

REACTIONS (5)
  - ARTERIAL HAEMORRHAGE [None]
  - HAEMATOCRIT DECREASED [None]
  - POST PROCEDURAL COMPLICATION [None]
  - SWELLING [None]
  - WOUND SECRETION [None]
